FAERS Safety Report 5363464-5 (Version None)
Quarter: 2007Q2

REPORT INFORMATION
  Report Type: 
  Country: None (occurrence: None)
  Receive Date: 20070620
  Receipt Date: 20070614
  Transmission Date: 20071010
  Serious: Yes (Death)
  Sender: FDA-Public Use
  Company Number: IT-JNJFOC-20070603478

PATIENT

DRUGS (1)
  1. ABCIXIMAB [Suspect]
     Indication: STENT PLACEMENT
     Route: 042

REACTIONS (1)
  - HAEMORRHAGE [None]
